FAERS Safety Report 6452855-7 (Version None)
Quarter: 2009Q4

REPORT INFORMATION
  Report Type: 
  Country: None (occurrence: None)
  Receive Date: 20091124
  Receipt Date: 20090113
  Transmission Date: 20100525
  Serious: No
  Sender: FDA-Public Use
  Company Number: US-ABBOTT-09P-163-0497721-00

PATIENT
  Sex: Female
  Weight: 68.1 kg

DRUGS (3)
  1. TRICOR [Suspect]
     Indication: BLOOD CHOLESTEROL INCREASED
     Dates: start: 20080922, end: 20081008
  2. TRICOR [Suspect]
     Indication: BLOOD TRIGLYCERIDES INCREASED
  3. VIVALLE DOT [Concomitant]
     Indication: HORMONE REPLACEMENT THERAPY
     Dosage: TRANSDERMAL PATCH

REACTIONS (4)
  - HEPATIC ENZYME INCREASED [None]
  - INFLUENZA LIKE ILLNESS [None]
  - PAIN IN EXTREMITY [None]
  - PAIN OF SKIN [None]
